FAERS Safety Report 8260291-6 (Version None)
Quarter: 2012Q2

REPORT INFORMATION
  Report Type: 
  Country: None (occurrence: None)
  Receive Date: 20120404
  Receipt Date: 20120330
  Transmission Date: 20120825
  Serious: Yes (Hospitalization)
  Sender: FDA-Public Use
  Company Number: US-GILEAD-2012-0053106

PATIENT
  Age: 54 Year
  Sex: Female

DRUGS (3)
  1. LETAIRIS [Suspect]
     Indication: PRODUCT USED FOR UNKNOWN INDICATION
     Dosage: 5 MG, UNK
     Route: 048
     Dates: start: 20100904
  2. ADCIRCA [Concomitant]
  3. FLOLAN [Concomitant]

REACTIONS (2)
  - RECTAL HAEMORRHAGE [None]
  - PALPITATIONS [None]
